FAERS Safety Report 21410777 (Version 1)
Quarter: 2022Q4

REPORT INFORMATION
  Report Type: Spontaneous
  Country: US (occurrence: None)
  Receive Date: 20221004
  Receipt Date: 20221004
  Transmission Date: 20230112
  Serious: No
  Sender: FDA-Public Use
  Company Number: None

PATIENT
  Sex: 0

DRUGS (1)
  1. ALENDRONATE SODIUM [Suspect]
     Active Substance: ALENDRONATE SODIUM
     Indication: Osteoporosis
     Dosage: OTHER FREQUENCY : ONCE WEEKLY;?
     Route: 048
     Dates: start: 20220814, end: 20220904

REACTIONS (25)
  - Fatigue [None]
  - Malaise [None]
  - Pyrexia [None]
  - Musculoskeletal stiffness [None]
  - Gingival pain [None]
  - Movement disorder [None]
  - Headache [None]
  - Abdominal distension [None]
  - Dry eye [None]
  - Pruritus [None]
  - Pain in extremity [None]
  - Groin pain [None]
  - Arthralgia [None]
  - Pain in extremity [None]
  - Back pain [None]
  - Nasal dryness [None]
  - Hot flush [None]
  - Eye pain [None]
  - Headache [None]
  - Arthralgia [None]
  - Bone pain [None]
  - Eye swelling [None]
  - Eye disorder [None]
  - Diplopia [None]
  - Vision blurred [None]
